FAERS Safety Report 12104555 (Version 2)
Quarter: 2017Q1

REPORT INFORMATION
  Report Type: Spontaneous
  Country: DK (occurrence: DK)
  Receive Date: 20160223
  Receipt Date: 20170221
  Transmission Date: 20170428
  Serious: Yes (Other)
  Sender: FDA-Public Use
  Company Number: DK-SA-2016SA032299

PATIENT
  Age: 62 Year
  Sex: Female
  Weight: 71 kg

DRUGS (9)
  1. ARAVA [Suspect]
     Active Substance: LEFLUNOMIDE
     Indication: RHEUMATOID ARTHRITIS
     Route: 048
     Dates: start: 20111214, end: 20151201
  2. CIMZIA [Suspect]
     Active Substance: CERTOLIZUMAB PEGOL
     Indication: RHEUMATOID ARTHRITIS
     Dosage: DOSAGE: 400 MG WEEK 0, 2 AND 4. THEREAFTER 200 MG EVERY 2ND WEEK?FORM - PREFILLED SYRINGE
     Route: 058
     Dates: start: 20150407, end: 20160129
  3. CIMZIA [Suspect]
     Active Substance: CERTOLIZUMAB PEGOL
     Indication: RHEUMATOID ARTHRITIS
     Dosage: DOSAGE: 400 MG WEEK 0, 2 AND 4. THEREAFTER 200 MG EVERY 2ND WEEK?FORM - PREFILLED SYRINGE
     Route: 058
     Dates: start: 20150407, end: 20160129
  4. LOSARTAN. [Concomitant]
     Active Substance: LOSARTAN
     Indication: HYPERTENSION
     Route: 065
     Dates: start: 201512
  5. CIMZIA [Suspect]
     Active Substance: CERTOLIZUMAB PEGOL
     Indication: RHEUMATOID ARTHRITIS
     Dosage: DOSAGE: 400 MG WEEK 0, 2 AND 4. THEREAFTER 200 MG EVERY 2ND WEEK?FORM - PREFILLED SYRINGE
     Route: 058
     Dates: start: 20150407, end: 20160129
  6. MAREVAN [Concomitant]
     Active Substance: WARFARIN SODIUM
     Indication: ATRIAL FIBRILLATION
     Route: 065
     Dates: start: 201112
  7. AMLODIPIN [Concomitant]
     Active Substance: AMLODIPINE BESYLATE
     Indication: HYPERTENSION
     Route: 065
     Dates: start: 201301
  8. THYCAPZOL [Concomitant]
     Active Substance: METHIMAZOLE
     Indication: THYROID DISORDER
     Route: 065
     Dates: start: 201209
  9. SIMVASTATIN. [Concomitant]
     Active Substance: SIMVASTATIN
     Indication: HYPERCHOLESTEROLAEMIA
     Route: 065
     Dates: start: 201112

REACTIONS (2)
  - Adenocarcinoma [Recovering/Resolving]
  - Cancer surgery [Recovered/Resolved]

NARRATIVE: CASE EVENT DATE: 20151125
